FAERS Safety Report 8615089-3 (Version None)
Quarter: 2012Q3

REPORT INFORMATION
  Report Type: 
  Country: None (occurrence: None)
  Receive Date: 20120823
  Receipt Date: 20120821
  Transmission Date: 20120928
  Serious: Yes (Other)
  Sender: FDA-Public Use
  Company Number: PHHY2012AU072486

PATIENT
  Sex: Female

DRUGS (5)
  1. STEROIDS NOS [Concomitant]
  2. FOSAMAX [Concomitant]
  3. ZOLEDRONOC ACID [Suspect]
     Dosage: 5 MG
     Route: 042
     Dates: start: 20110307
  4. ZOLEDRONOC ACID [Suspect]
     Dosage: 5 MG
     Route: 042
     Dates: start: 20120821
  5. ZOLEDRONOC ACID [Suspect]
     Dosage: 5 MG
     Route: 042
     Dates: start: 20100101

REACTIONS (4)
  - ASTHMA [None]
  - BONE DENSITY DECREASED [None]
  - MALAISE [None]
  - PNEUMONIA [None]
